FAERS Safety Report 8994392 (Version 1)
Quarter: 2012Q4

REPORT INFORMATION
  Report Type: Spontaneous
  Country: US (occurrence: None)
  Receive Date: 20121227
  Receipt Date: 20121227
  Transmission Date: 20130627
  Serious: Yes (Disabling)
  Sender: FDA-Public Use
  Company Number: None

PATIENT
  Age: 45 Year
  Sex: Male
  Weight: 81.65 kg

DRUGS (1)
  1. PROPECIA [Suspect]
     Indication: HAIR LOSS
     Dosage: 1 mg daily po
     Route: 048
     Dates: start: 20110827, end: 20111130

REACTIONS (5)
  - Testicular pain [None]
  - Organic erectile dysfunction [None]
  - Cognitive disorder [None]
  - Erectile dysfunction [None]
  - Drug ineffective [None]
